FAERS Safety Report 24926659 (Version 2)
Quarter: 2025Q1

REPORT INFORMATION
  Report Type: Spontaneous
  Country: JP (occurrence: JP)
  Receive Date: 20250205
  Receipt Date: 20250228
  Transmission Date: 20250409
  Serious: Yes (Hospitalization, Other)
  Sender: UCB
  Company Number: JP-UCBJ-CD202501369UCBPHAPROD

PATIENT
  Age: 3 Decade
  Sex: Male

DRUGS (3)
  1. VIMPAT [Suspect]
     Active Substance: LACOSAMIDE
     Indication: Temporal lobe epilepsy
     Route: 048
  2. LEVETIRACETAM [Suspect]
     Active Substance: LEVETIRACETAM
     Indication: Temporal lobe epilepsy
     Route: 048
  3. FYCOMPA [Concomitant]
     Active Substance: PERAMPANEL
     Indication: Temporal lobe epilepsy
     Route: 048

REACTIONS (3)
  - Partial seizures with secondary generalisation [Recovered/Resolved]
  - Somnolence [Unknown]
  - Drug ineffective [Unknown]
